FAERS Safety Report 11646397 (Version 1)
Quarter: 2015Q4

REPORT INFORMATION
  Report Type: Spontaneous
  Country: US (occurrence: US)
  Receive Date: 20151020
  Receipt Date: 20151020
  Transmission Date: 20160304
  Serious: No
  Sender: FDA-Public Use
  Company Number: US-ROCHE-ITM201506IM018437

PATIENT
  Sex: Female

DRUGS (2)
  1. ESBRIET [Suspect]
     Active Substance: PIRFENIDONE
     Route: 048
     Dates: start: 20150706
  2. ESBRIET [Suspect]
     Active Substance: PIRFENIDONE
     Indication: IDIOPATHIC PULMONARY FIBROSIS
     Route: 048
     Dates: start: 20150605

REACTIONS (7)
  - Immune system disorder [Unknown]
  - Skin discolouration [Unknown]
  - Abdominal pain upper [Unknown]
  - Diarrhoea [Unknown]
  - Alopecia [Unknown]
  - Pulmonary congestion [Unknown]
  - Condition aggravated [Unknown]
